FAERS Safety Report 19489111 (Version 4)
Quarter: 2022Q1

REPORT INFORMATION
  Report Type: Spontaneous
  Country: DE (occurrence: DE)
  Receive Date: 20210703
  Receipt Date: 20220322
  Transmission Date: 20220423
  Serious: Yes (Other)
  Sender: FDA-Public Use
  Company Number: DE-009507513-2012DEU002570

PATIENT
  Age: 67 Year
  Sex: Female

DRUGS (10)
  1. DOCETAXEL [Suspect]
     Active Substance: DOCETAXEL
     Indication: Lung cancer metastatic
     Dosage: UNK, THE FIRST CYCLE
     Route: 065
  2. DOCETAXEL [Suspect]
     Active Substance: DOCETAXEL
     Dosage: 75 MILLIGRAM/SQ. METER
     Route: 065
     Dates: start: 20190704, end: 20191017
  3. DOCETAXEL [Suspect]
     Active Substance: DOCETAXEL
     Dosage: 75 MILLIGRAM/SQ. METER, CYCLICAL
     Route: 065
     Dates: start: 20210204, end: 20210225
  4. PEMETREXED DISODIUM [Suspect]
     Active Substance: PEMETREXED DISODIUM
     Indication: Lung neoplasm malignant
     Dosage: UNK
     Route: 065
     Dates: start: 20190411
  5. NINTEDANIB [Suspect]
     Active Substance: NINTEDANIB
     Indication: Lung cancer metastatic
     Dosage: 400 MILLIGRAM, ONCE A DAY(2ND LINE, DAY 2-21, 2 X 200MG )
     Route: 065
     Dates: start: 20190705, end: 20190904
  6. NINTEDANIB [Suspect]
     Active Substance: NINTEDANIB
     Dosage: 300 MILLIGRAM, ONCE A DAY(2ND LINE, 2 X 150MG )
     Route: 065
     Dates: start: 20190906
  7. NINTEDANIB [Suspect]
     Active Substance: NINTEDANIB
     Dosage: UNK
     Route: 065
     Dates: start: 20191018, end: 20210204
  8. CARBOPLATIN [Suspect]
     Active Substance: CARBOPLATIN
     Indication: Lung neoplasm malignant
     Dosage: UNK
     Route: 065
     Dates: start: 20190411
  9. PEMBROLIZUMAB [Suspect]
     Active Substance: PEMBROLIZUMAB
     Indication: Lung neoplasm malignant
     Dosage: UNK
     Route: 065
     Dates: start: 20190411
  10. DENOSUMAB [Concomitant]
     Active Substance: DENOSUMAB
     Indication: Prophylaxis
     Dosage: UNK
     Route: 065
     Dates: start: 20190411

REACTIONS (4)
  - Malignant neoplasm progression [Unknown]
  - Diarrhoea [Unknown]
  - Nausea [Unknown]
  - Therapy partial responder [Unknown]

NARRATIVE: CASE EVENT DATE: 20190601
